FAERS Safety Report 6267358-2 (Version None)
Quarter: 2009Q3

REPORT INFORMATION
  Report Type: 
  Country: None (occurrence: None)
  Receive Date: 20090714
  Receipt Date: 20090706
  Transmission Date: 20100115
  Serious: Yes (Life-Threatening)
  Sender: FDA-Public Use
  Company Number: B0582300A

PATIENT
  Age: 31 Year
  Sex: Male

DRUGS (2)
  1. COMBIVIR [Suspect]
     Indication: PROPHYLAXIS AGAINST HIV INFECTION
     Route: 048
     Dates: start: 20090509, end: 20090516
  2. KALETRA [Suspect]
     Indication: PROPHYLAXIS AGAINST HIV INFECTION
     Route: 048
     Dates: start: 20090509, end: 20090516

REACTIONS (3)
  - BLOOD CREATININE INCREASED [None]
  - HAEMATURIA [None]
  - RENAL IMPAIRMENT [None]
